FAERS Safety Report 12777434 (Version 1)
Quarter: 2016Q3

REPORT INFORMATION
  Report Type: Spontaneous
  Country: US (occurrence: US)
  Receive Date: 20160924
  Receipt Date: 20160924
  Transmission Date: 20161109
  Serious: No
  Sender: FDA-Public Use
  Company Number: US-TEVA-651915USA

PATIENT
  Sex: Female

DRUGS (2)
  1. FOLINIC ACID [Suspect]
     Active Substance: LEUCOVORIN
  2. RASUVO [Suspect]
     Active Substance: METHOTREXATE SODIUM

REACTIONS (5)
  - Hepatic enzyme increased [Unknown]
  - Pain [Unknown]
  - Feeling abnormal [Unknown]
  - Headache [Unknown]
  - Drug ineffective [Unknown]
